FAERS Safety Report 9284286 (Version 2)
Quarter: 2013Q3

REPORT INFORMATION
  Report Type: Spontaneous
  Country: US (occurrence: US)
  Receive Date: 20130510
  Receipt Date: 20130802
  Transmission Date: 20140515
  Serious: No
  Sender: FDA-Public Use
  Company Number: US-JNJFOC-20130404764

PATIENT
  Age: 33 Year
  Sex: Male

DRUGS (7)
  1. INVEGA SUSTENNA [Suspect]
     Indication: SCHIZOPHRENIA
     Route: 030
     Dates: start: 20130320
  2. INVEGA SUSTENNA [Suspect]
     Indication: SCHIZOPHRENIA
     Route: 030
  3. INVEGA SUSTENNA [Suspect]
     Indication: SCHIZOPHRENIA
     Route: 030
     Dates: start: 20130329, end: 20130404
  4. RISPERDAL [Suspect]
     Indication: SCHIZOPHRENIA
     Route: 048
     Dates: start: 20130312, end: 20130320
  5. PRILOSEC [Suspect]
     Indication: DYSPEPSIA
     Route: 065
  6. SEROQUEL XR [Suspect]
     Indication: SCHIZOPHRENIA
     Route: 065
     Dates: start: 20130306, end: 20130403
  7. ZYPREXA [Suspect]
     Indication: SCHIZOPHRENIA
     Route: 065
     Dates: start: 20130219, end: 20130306

REACTIONS (2)
  - Drooling [Recovered/Resolved]
  - Dysarthria [Recovered/Resolved]
